FAERS Safety Report 15634227 (Version 1)
Quarter: 2018Q4

REPORT INFORMATION
  Report Type: Spontaneous
  Country: US (occurrence: US)
  Receive Date: 20181119
  Receipt Date: 20181119
  Transmission Date: 20190205
  Serious: No
  Sender: FDA-Public Use
  Company Number: US-PFIZER INC-2018472970

PATIENT
  Age: 69 Year
  Sex: Female

DRUGS (1)
  1. XELJANZ XR [Suspect]
     Active Substance: TOFACITINIB CITRATE
     Indication: RHEUMATOID ARTHRITIS
     Dosage: 11 MG, 1X/DAY
     Route: 048
     Dates: start: 201801

REACTIONS (5)
  - Sinusitis [Recovered/Resolved]
  - Arthralgia [Not Recovered/Not Resolved]
  - Drug effect incomplete [Unknown]
  - Myalgia [Not Recovered/Not Resolved]
  - Sensitivity to weather change [Unknown]
